FAERS Safety Report 5951203-6 (Version None)
Quarter: 2008Q4

REPORT INFORMATION
  Report Type: 
  Country: None (occurrence: None)
  Receive Date: 20081111
  Receipt Date: 20081111
  Transmission Date: 20090506
  Serious: Yes (Life-Threatening, Disabling, Other)
  Sender: FDA-Public Use
  Company Number: None

PATIENT
  Age: 11 Year
  Sex: Female
  Weight: 52.1637 kg

DRUGS (2)
  1. ADVAIR DISKUS 100/50 [Suspect]
     Indication: ASTHMA
     Dosage: ONE PUFF TWICE DAILY INHAL
     Route: 055
     Dates: start: 20040101, end: 20081110
  2. SINGULAIR [Suspect]
     Indication: ASTHMA
     Dosage: ONE PILL ONCE DAILY PO
     Route: 048
     Dates: start: 20040101, end: 20081110

REACTIONS (3)
  - HOMICIDAL IDEATION [None]
  - MENTAL DISORDER [None]
  - SUICIDAL IDEATION [None]
